FAERS Safety Report 4717053-3 (Version None)
Quarter: 2005Q3

REPORT INFORMATION
  Report Type: 
  Country: None (occurrence: None)
  Receive Date: 20050719
  Receipt Date: 20050708
  Transmission Date: 20060218
  Serious: Yes (Life-Threatening, Hospitalization)
  Sender: FDA-Public Use
  Company Number: US-BRISTOL-MYERS SQUIBB COMPANY-13030903

PATIENT
  Sex: Female

DRUGS (2)
  1. TRAZODONE HCL [Suspect]
  2. PROVIGIL [Interacting]
     Route: 048

REACTIONS (4)
  - ARRHYTHMIA [None]
  - DRUG INTERACTION [None]
  - MULTI-ORGAN FAILURE [None]
  - PALPITATIONS [None]
